FAERS Safety Report 12470991 (Version 1)
Quarter: 2016Q2

REPORT INFORMATION
  Report Type: Spontaneous
  Country: US (occurrence: US)
  Receive Date: 20160616
  Receipt Date: 20160616
  Transmission Date: 20160815
  Serious: Yes (Hospitalization, Other)
  Sender: FDA-Public Use
  Company Number: US-SUN PHARMACEUTICAL INDUSTRIES LTD-2016US-118612

PATIENT
  Age: 66 Year
  Sex: Male

DRUGS (5)
  1. TACROLIMUS. [Suspect]
     Active Substance: TACROLIMUS
     Indication: IMMUNOSUPPRESSION
     Route: 065
  2. VALAGANCICLOVIR [Concomitant]
     Indication: PROPHYLAXIS
     Route: 065
  3. MYCOPHENOLATE [Suspect]
     Active Substance: MYCOPHENOLIC ACID
     Indication: IMMUNOSUPPRESSION
     Route: 065
  4. PREDNISONE. [Suspect]
     Active Substance: PREDNISONE
     Indication: IMMUNOSUPPRESSION
     Route: 065
  5. SULPHAMETHOXAZOLE, TRIMETHOPRIM [Concomitant]
     Indication: PROPHYLAXIS
     Route: 065

REACTIONS (1)
  - Nocardiosis [Recovering/Resolving]
